FAERS Safety Report 7687684-X (Version None)
Quarter: 2011Q3

REPORT INFORMATION
  Report Type: 
  Country: None (occurrence: None)
  Receive Date: 20110817
  Receipt Date: 20110812
  Transmission Date: 20111222
  Serious: No
  Sender: FDA-Public Use
  Company Number: US-TEVA-296544USA

PATIENT
  Sex: Female
  Weight: 86.714 kg

DRUGS (2)
  1. PLAN B ONE-STEP [Suspect]
     Indication: POST COITAL CONTRACEPTION
     Dosage: 1.5 MILLIGRAM;
     Route: 048
     Dates: start: 20110727, end: 20110727
  2. FLUOXETINE [Concomitant]
     Indication: ANXIETY
     Dosage: 30 MILLIGRAM;
     Route: 048

REACTIONS (3)
  - NAUSEA [None]
  - FATIGUE [None]
  - MENSTRUATION IRREGULAR [None]
